FAERS Safety Report 15103998 (Version 1)
Quarter: 2018Q3

REPORT INFORMATION
  Report Type: Spontaneous
  Country: US (occurrence: US)
  Receive Date: 20180703
  Receipt Date: 20180703
  Transmission Date: 20181010
  Serious: No
  Sender: FDA-Public Use
  Company Number: US-BIOVERATIV-2018BV000423

PATIENT
  Age: 43 Year
  Sex: Male
  Weight: 79.4 kg

DRUGS (2)
  1. ALPROLIX [Suspect]
     Active Substance: EFTRENONACOG ALFA
     Indication: PRODUCT USED FOR UNKNOWN INDICATION
     Dosage: WEEKLY ON SUNDAYS, 4?5 YEARS?6/24/18
     Route: 065
  2. ALPROLIX [Suspect]
     Active Substance: EFTRENONACOG ALFA
     Dosage: EXTRA DOSE
     Route: 065
     Dates: start: 20180624

REACTIONS (1)
  - Haemarthrosis [Not Recovered/Not Resolved]

NARRATIVE: CASE EVENT DATE: 20180624
